FAERS Safety Report 13668935 (Version 2)
Quarter: 2017Q3

REPORT INFORMATION
  Report Type: Report from Study
  Country: US (occurrence: US)
  Receive Date: 20170620
  Receipt Date: 20170903
  Transmission Date: 20171127
  Serious: No
  Sender: FDA-Public Use
  Company Number: US-009507513-1706USA001187

PATIENT
  Sex: Female
  Weight: 70.75 kg

DRUGS (2)
  1. IMPLANON [Suspect]
     Active Substance: ETONOGESTREL
     Dosage: 68 MG (1 ROD), EVERY 3 YEARS
     Route: 059
     Dates: start: 20170530, end: 20170530
  2. IMPLANON [Suspect]
     Active Substance: ETONOGESTREL
     Dosage: 68 MG (1 ROD), EVERY 3 YEARS
     Route: 059
     Dates: start: 20170530

REACTIONS (3)
  - Complication of device insertion [Recovered/Resolved]
  - Device difficult to use [Recovered/Resolved]
  - Product quality issue [Unknown]

NARRATIVE: CASE EVENT DATE: 20170530
